FAERS Safety Report 5333379-7 (Version None)
Quarter: 2007Q2

REPORT INFORMATION
  Report Type: 
  Country: None (occurrence: None)
  Receive Date: 20070524
  Receipt Date: 20070516
  Transmission Date: 20071010
  Serious: Yes (Hospitalization, Other)
  Sender: FDA-Public Use
  Company Number: US-ROCHE-495111

PATIENT
  Age: 39 Year
  Sex: Male
  Weight: 102.1 kg

DRUGS (4)
  1. PEGASYS [Suspect]
     Route: 065
     Dates: start: 20061001, end: 20070313
  2. RIBAVIRIN [Suspect]
     Route: 065
     Dates: start: 20061001, end: 20070313
  3. SOMA [Concomitant]
     Dosage: THE PATIENT TAKES SOME 350 MG THREE TIMES DAILY AS NEEDED.
     Route: 048
  4. VICODIN [Concomitant]
     Dosage: THE PATIENT TAKES ^VICODIN 5/325 EVERY 4 HOURS AS NEEDED FOR PAIN.^
     Route: 048

REACTIONS (5)
  - PANCYTOPENIA [None]
  - PORTAL HYPERTENSIVE GASTROPATHY [None]
  - PRURITUS [None]
  - PYREXIA [None]
  - VARICES OESOPHAGEAL [None]
